FAERS Safety Report 10698492 (Version 1)
Quarter: 2014Q4

REPORT INFORMATION
  Report Type: Spontaneous
  Country: US (occurrence: None)
  Receive Date: 20141223
  Receipt Date: 20141223
  Transmission Date: 20150529
  Serious: No
  Sender: FDA-Public Use
  Company Number: 1000070969

PATIENT
  Age: 75 Year
  Sex: Female

DRUGS (2)
  1. POTASSIUM CHLORIDE (POTASSIUM CHLORIDE) (POTASSIUM CHLORIDE) [Concomitant]
     Active Substance: POTASSIUM CHLORIDE
  2. LINZESS [Suspect]
     Active Substance: LINACLOTIDE
     Indication: CONSTIPATION
     Route: 048
     Dates: start: 20140920

REACTIONS (5)
  - Epistaxis [None]
  - Dyspnoea [None]
  - Palpitations [None]
  - Somnolence [None]
  - Chest pain [None]

NARRATIVE: CASE EVENT DATE: 201409
